FAERS Safety Report 21394826 (Version 2)
Quarter: 2022Q4

REPORT INFORMATION
  Report Type: Report from Study
  Country: BR (occurrence: BR)
  Receive Date: 20220930
  Receipt Date: 20221022
  Transmission Date: 20230112
  Serious: Yes (Hospitalization, Other)
  Sender: FDA-Public Use
  Company Number: BR-JNJFOC-20220946190

PATIENT
  Sex: Female
  Weight: 60 kg

DRUGS (2)
  1. REMICADE [Suspect]
     Active Substance: INFLIXIMAB
     Indication: Crohn^s disease
     Dosage: 3 VIALS
     Route: 041
     Dates: start: 20141001, end: 2021
  2. ADALIMUMAB [Suspect]
     Active Substance: ADALIMUMAB
     Indication: Crohn^s disease
     Dosage: 1 SYRINGE
     Route: 065

REACTIONS (8)
  - Hepatic cirrhosis [Unknown]
  - Thrombosis [Unknown]
  - Immunodeficiency [Unknown]
  - Crohn^s disease [Not Recovered/Not Resolved]
  - Cardiac disorder [Unknown]
  - Skin haemorrhage [Unknown]
  - Herpes zoster [Unknown]
  - Drug ineffective [Unknown]
